FAERS Safety Report 7007875-0 (Version None)
Quarter: 2010Q3

REPORT INFORMATION
  Report Type: 
  Country: None (occurrence: None)
  Receive Date: 20100922
  Receipt Date: 20100910
  Transmission Date: 20110219
  Serious: Yes (Death)
  Sender: FDA-Public Use
  Company Number: DE-ROCHE-727424

PATIENT

DRUGS (2)
  1. CAPECITABINE [Suspect]
     Dosage: LAST DOSE PRIOR TO SAE: 27 MAY 2008.
     Route: 065
     Dates: start: 20080311, end: 20080603
  2. PACLITAXEL [Concomitant]
     Dates: start: 20080605

REACTIONS (1)
  - MALIGNANT NEOPLASM PROGRESSION [None]
